FAERS Safety Report 10636106 (Version 2)
Quarter: 2015Q1

REPORT INFORMATION
  Report Type: Spontaneous
  Country: US (occurrence: US)
  Receive Date: 20141205
  Receipt Date: 20150126
  Transmission Date: 20150720
  Serious: Yes (Hospitalization, Other)
  Sender: FDA-Public Use
  Company Number: US-GLAXOSMITHKLINE-US2014031613

PATIENT
  Age: 67 Year
  Sex: Female

DRUGS (7)
  1. ALPRAZOLAM. [Concomitant]
     Active Substance: ALPRAZOLAM
  2. AMLODIPINE [Concomitant]
     Active Substance: AMLODIPINE BESYLATE
  3. OMEPRAZOLE. [Concomitant]
     Active Substance: OMEPRAZOLE
  4. SPIRIVA [Concomitant]
     Active Substance: TIOTROPIUM BROMIDE MONOHYDRATE
  5. GABAPENTIN. [Concomitant]
     Active Substance: GABAPENTIN
  6. SUCRALFATE. [Concomitant]
     Active Substance: SUCRALFATE
  7. ADVAIR DISKUS [Suspect]
     Active Substance: FLUTICASONE PROPIONATE\SALMETEROL XINAFOATE
     Indication: PRODUCT USED FOR UNKNOWN INDICATION
     Dosage: 1 PUFF(S), BID
     Route: 055

REACTIONS (4)
  - Product quality issue [Unknown]
  - Pneumonia [Unknown]
  - Lung neoplasm malignant [Not Recovered/Not Resolved]
  - Device defective [None]

NARRATIVE: CASE EVENT DATE: 201405
